FAERS Safety Report 10517765 (Version 2)
Quarter: 2015Q1

REPORT INFORMATION
  Report Type: Report from Study
  Country: FR (occurrence: FR)
  Receive Date: 20141014
  Receipt Date: 20150126
  Transmission Date: 20150720
  Serious: Yes (Hospitalization, Other)
  Sender: FDA-Public Use
  Company Number: FR-GLAXOSMITHKLINE-FR2014GSK000436

PATIENT
  Age: 72 Year
  Sex: Male
  Weight: 112 kg

DRUGS (24)
  1. VALACICLOVIR HYDROCHLORIDE [Suspect]
     Active Substance: VALACYCLOVIR HYDROCHLORIDE
     Indication: OPHTHALMIC HERPES ZOSTER
     Dosage: 1 MG, UNK
     Route: 065
     Dates: start: 20140912, end: 20140915
  2. CALCIUM CARBONATE. [Concomitant]
     Active Substance: CALCIUM CARBONATE
  3. FOLIC ACID. [Concomitant]
     Active Substance: FOLIC ACID
     Dosage: 5 MG, UNK
     Dates: start: 20100722
  4. HUMALOG [Concomitant]
     Active Substance: INSULIN LISPRO
     Dosage: 3 UNK, UNK
     Dates: start: 201401
  5. ESOMEPRAZOLE [Concomitant]
     Active Substance: ESOMEPRAZOLE
     Dosage: 20 MG, UNK
     Dates: start: 20100722
  6. ASPIRIN DL LYSINE [Concomitant]
     Dosage: 75 MG, UNK
     Dates: start: 20110705
  7. PYGEUM AFRICANUM EXTRACT [Concomitant]
     Dosage: 50 MG, UNK
     Dates: start: 20110618
  8. POLYETHYLENE GLYCOL [Concomitant]
     Active Substance: POLYETHYLENE GLYCOLS
  9. VALACICLOVIR HYDROCHLORIDE [Suspect]
     Active Substance: VALACYCLOVIR HYDROCHLORIDE
     Dosage: 500 MG, UNK
     Dates: start: 20140915, end: 20140915
  10. CALCIUM ACETATE. [Concomitant]
     Active Substance: CALCIUM ACETATE
     Dosage: UNK
     Dates: start: 20130814
  11. AMLOR [Concomitant]
     Active Substance: AMLODIPINE BESYLATE
     Dosage: 5 MG, UNK
     Dates: start: 20140613
  12. ATORVASTATIN CALCIUM. [Concomitant]
     Active Substance: ATORVASTATIN CALCIUM
     Dosage: 20 MG, UNK
     Dates: start: 2000
  13. METHOXY POLYETHYLENE GLYCOL-EPOETIN BETA [Suspect]
     Active Substance: PEGZEREPOETIN ALFA
     Indication: ANAEMIA
     Dosage: UNK
     Dates: start: 20140825
  14. CHOLECALCIFEROL [Concomitant]
     Active Substance: CHOLECALCIFEROL
     Dosage: ONCE A MONTH
     Dates: start: 20120207
  15. PARACETAMOL [Concomitant]
     Active Substance: ACETAMINOPHEN
     Dosage: UNK, PRN
     Dates: start: 20110507
  16. LASILIX [Concomitant]
     Active Substance: FUROSEMIDE
     Dosage: 1000 MG, UNK
     Dates: start: 2000
  17. CALCIUM ACETATE. [Concomitant]
     Active Substance: CALCIUM ACETATE
  18. CINACALCET [Concomitant]
     Active Substance: CINACALCET
     Dosage: 60 UNK, UNK
     Dates: start: 20140915
  19. ESOMEPRAZOLE [Concomitant]
     Active Substance: ESOMEPRAZOLE
  20. METHOXY POLYETHYLENE GLYCOL-EPOETIN BETA [Suspect]
     Active Substance: PEGZEREPOETIN ALFA
     Indication: CHRONIC KIDNEY DISEASE
     Dosage: UNK
     Route: 042
     Dates: start: 20111025
  21. LANTUS [Concomitant]
     Active Substance: INSULIN GLARGINE
     Dosage: 22 IU, UNK
     Dates: start: 20140613
  22. CALCIUM POLYSTYRENE SULFONATE [Concomitant]
     Active Substance: CALCIUM POLYSTYRENE SULFONATE
     Dosage: UNK
  23. TAMSULOSIN HYDROCHLORIDE. [Concomitant]
     Active Substance: TAMSULOSIN HYDROCHLORIDE
     Dosage: 0.4 MG, UNK
     Dates: start: 20100722
  24. LIDOCAINE + PRILOCAINE [Concomitant]
     Dosage: UNK
     Dates: start: 20091229

REACTIONS (3)
  - Hallucination [Recovered/Resolved]
  - Overdose [Recovered/Resolved]
  - Ophthalmic herpes zoster [Recovered/Resolved]

NARRATIVE: CASE EVENT DATE: 20140908
